FAERS Safety Report 9261427 (Version 1)
Quarter: 2013Q2

REPORT INFORMATION
  Report Type: Spontaneous
  Country: US (occurrence: US)
  Receive Date: 20130429
  Receipt Date: 20130429
  Transmission Date: 20140414
  Serious: No
  Sender: FDA-Public Use
  Company Number: US-009507513-1304USA014386

PATIENT
  Age: 22 Year
  Sex: Female
  Weight: 41.72 kg

DRUGS (3)
  1. NUVARING [Suspect]
     Indication: CONTRACEPTION
     Dosage: 1 RING FOR 3 RINGS
     Route: 067
     Dates: start: 201204
  2. ASCORBIC ACID [Concomitant]
  3. ALBUTEROL SULFATE [Concomitant]
     Indication: ASTHMA

REACTIONS (2)
  - Metrorrhagia [Unknown]
  - Weight decreased [Unknown]
